FAERS Safety Report 4266146-6 (Version None)
Quarter: 2004Q1

REPORT INFORMATION
  Report Type: 
  Country: None (occurrence: None)
  Receive Date: 20040106
  Receipt Date: 20031218
  Transmission Date: 20041129
  Serious: Yes (Death)
  Sender: FDA-Public Use
  Company Number: M03-341-144

PATIENT
  Age: 70 Year
  Sex: Female
  Weight: 84 kg

DRUGS (7)
  1. VELCADE [Suspect]
     Indication: MULTIPLE MYELOMA
     Dosage: 2.5 MG: INTRAVENOUS (NOT OTHERWISE SPECIFIED)
     Route: 042
     Dates: start: 20030929, end: 20031027
  2. COMPAZINE [Concomitant]
  3. DURAGESIC [Concomitant]
  4. LASIX [Concomitant]
  5. PREVACID [Concomitant]
  6. PROCRIT          (ERYTHROPOIETIN) [Concomitant]
  7. WARFARIN SODIUM [Concomitant]

REACTIONS (7)
  - ASPIRATION [None]
  - ASTHENIA [None]
  - FALL [None]
  - ISCHAEMIC CEREBRAL INFARCTION [None]
  - PNEUMONIA [None]
  - PROTHROMBIN TIME PROLONGED [None]
  - THROMBOCYTOPENIA [None]
